FAERS Safety Report 5766085-5 (Version None)
Quarter: 2008Q2

REPORT INFORMATION
  Report Type: 
  Country: None (occurrence: None)
  Receive Date: 20080609
  Receipt Date: 20080218
  Transmission Date: 20081010
  Serious: No
  Sender: FDA-Public Use
  Company Number: 002#2#2007-00258

PATIENT
  Age: 59 Year
  Sex: Male
  Weight: 122.4712 kg

DRUGS (7)
  1. NEUPRO [Suspect]
     Indication: PARKINSON'S DISEASE
     Dosage: 2MG/24H, 1 IN 1 D, TRANSDERMAL; 4MG/24H, 1 IN 1 D, TRANSDERMAL; 6MG/24H, 1 IN 1 D, TRANSDERMAL
     Route: 062
  2. VYTORIN [Concomitant]
  3. LEXAPRO [Concomitant]
  4. FISH OIL [Concomitant]
  5. UNSPPECIFIED DIURETIC [Concomitant]
  6. AVALIDE [Concomitant]
  7. VITAMIN B-12 [Concomitant]

REACTIONS (4)
  - FATIGUE [None]
  - FLUID RETENTION [None]
  - TREMOR [None]
  - WHITE BLOOD CELL COUNT DECREASED [None]
